FAERS Safety Report 13272330 (Version 1)
Quarter: 2017Q1

REPORT INFORMATION
  Report Type: Spontaneous
  Country: US (occurrence: US)
  Receive Date: 20170225
  Receipt Date: 20170225
  Transmission Date: 20170428
  Serious: Yes (Disabling)
  Sender: FDA-Public Use
  Company Number: None

PATIENT
  Age: 3 Year
  Sex: Male
  Weight: 40.5 kg

DRUGS (2)
  1. MIRALAX [Suspect]
     Active Substance: POLYETHYLENE GLYCOL 3350
     Indication: CONSTIPATION
     Route: 048
     Dates: start: 20090915, end: 20160201
  2. ZOLOFT [Concomitant]
     Active Substance: SERTRALINE HYDROCHLORIDE

REACTIONS (9)
  - Depression [None]
  - Crying [None]
  - Suicidal ideation [None]
  - Screaming [None]
  - Anger [None]
  - Sleep terror [None]
  - Abnormal behaviour [None]
  - Violence-related symptom [None]
  - Anxiety [None]

NARRATIVE: CASE EVENT DATE: 20091001
